FAERS Safety Report 4632128-5 (Version None)
Quarter: 2005Q2

REPORT INFORMATION
  Report Type: 
  Country: None (occurrence: None)
  Receive Date: 20050401
  Receipt Date: 20040301
  Transmission Date: 20051028
  Serious: Yes (Hospitalization)
  Sender: FDA-Public Use
  Company Number: 04P-163-0253192-00

PATIENT
  Age: 12 Year
  Sex: Male

DRUGS (1)
  1. DEPAKOTE [Suspect]
     Indication: BIPOLAR DISORDER
     Dosage: 500-250-500 MG DAILY
     Dates: start: 20020201, end: 20040219

REACTIONS (1)
  - PANCREATITIS ACUTE [None]
